FAERS Safety Report 6931819-0 (Version None)
Quarter: 2010Q3

REPORT INFORMATION
  Report Type: 
  Country: None (occurrence: None)
  Receive Date: 20100819
  Receipt Date: 20100812
  Transmission Date: 20110219
  Serious: No
  Sender: FDA-Public Use
  Company Number: US-BIOGENIDEC-2010BI027659

PATIENT
  Sex: Female

DRUGS (2)
  1. AVONEX [Suspect]
     Indication: MULTIPLE SCLEROSIS
     Route: 030
     Dates: start: 20080901, end: 20090301
  2. AVONEX [Suspect]
     Route: 030
     Dates: start: 20100703

REACTIONS (3)
  - ASTHENIA [None]
  - BALANCE DISORDER [None]
  - FATIGUE [None]
